FAERS Safety Report 14254006 (Version 2)
Quarter: 2017Q4

REPORT INFORMATION
  Report Type: Spontaneous
  Country: US (occurrence: US)
  Receive Date: 20171205
  Receipt Date: 20171212
  Transmission Date: 20180321
  Serious: No
  Sender: FDA-Public Use
  Company Number: US-GLAXOSMITHKLINE-US2017181513

PATIENT
  Sex: Male

DRUGS (1)
  1. TANZEUM [Suspect]
     Active Substance: ALBIGLUTIDE
     Indication: DIABETES MELLITUS
     Dosage: 50 MG, UNK

REACTIONS (6)
  - Product quality issue [Unknown]
  - Injection site pain [Unknown]
  - Injection site reaction [Unknown]
  - Injection site erythema [Unknown]
  - Underdose [Unknown]
  - Injection site irritation [Not Recovered/Not Resolved]
